FAERS Safety Report 6847769-4 (Version None)
Quarter: 2010Q3

REPORT INFORMATION
  Report Type: 
  Country: None (occurrence: None)
  Receive Date: 20100716
  Receipt Date: 20100714
  Transmission Date: 20110219
  Serious: Yes (Death, Hospitalization)
  Sender: FDA-Public Use
  Company Number: PHHY2010MX46259

PATIENT
  Age: 74 Year
  Sex: Female

DRUGS (2)
  1. DIOVAN HCT [Suspect]
     Indication: HYPERTENSION
     Dosage: 80/12.5 MG, PER DAY
     Dates: start: 20090801, end: 20100401
  2. DIOVAN HCT [Suspect]
     Dosage: 160/12.5 MG

REACTIONS (5)
  - ADVERSE REACTION [None]
  - ARRHYTHMIA [None]
  - BONE NEOPLASM MALIGNANT [None]
  - CARDIAC DISORDER [None]
  - DIARRHOEA HAEMORRHAGIC [None]
